FAERS Safety Report 5753786-8 (Version None)
Quarter: 2008Q2

REPORT INFORMATION
  Report Type: 
  Country: None (occurrence: None)
  Receive Date: 20080530
  Receipt Date: 20080521
  Transmission Date: 20081010
  Serious: Yes (Hospitalization, Other)
  Sender: FDA-Public Use
  Company Number: US-ABBOTT-08P-163-0452804-00

PATIENT
  Sex: Male
  Weight: 93.07 kg

DRUGS (7)
  1. HUMIRA [Suspect]
     Indication: RHEUMATOID ARTHRITIS
     Route: 058
     Dates: start: 20051201, end: 20060626
  2. METHOTREXATE [Suspect]
     Indication: RHEUMATOID ARTHRITIS
     Route: 048
     Dates: start: 20030501, end: 20060626
  3. METHOTREXATE [Suspect]
     Dates: start: 20071001, end: 20071001
  4. HUMIRA [Suspect]
     Indication: RHEUMATOID ARTHRITIS
     Route: 058
     Dates: start: 20080521
  5. BUPROPION HCL [Concomitant]
     Indication: DRUG USE FOR UNKNOWN INDICATION
     Dosage: 150SR EVERYDAY
     Route: 048
  6. TEMAZEPAM [Concomitant]
     Indication: DRUG USE FOR UNKNOWN INDICATION
     Dosage: 2 TABLETS EVERY NIGHT
     Route: 048
  7. EPILEPTIC MEDS X2 [Concomitant]
     Indication: CONVULSION
     Route: 048

REACTIONS (17)
  - ARTHRALGIA [None]
  - CARDIOVERSION [None]
  - CEREBRAL HAEMORRHAGE [None]
  - CONTUSION [None]
  - CONVULSION [None]
  - DEAFNESS BILATERAL [None]
  - EAR ABRASION [None]
  - EAR CANAL ABRASION [None]
  - FALL [None]
  - INTERVERTEBRAL DISC PROTRUSION [None]
  - JOINT CREPITATION [None]
  - JOINT SWELLING [None]
  - LOSS OF CONSCIOUSNESS [None]
  - MEMORY IMPAIRMENT [None]
  - MENISCUS LESION [None]
  - RIB FRACTURE [None]
  - SKULL FRACTURE [None]
